FAERS Safety Report 7033083-3 (Version None)
Quarter: 2010Q4

REPORT INFORMATION
  Report Type: 
  Country: None (occurrence: None)
  Receive Date: 20101005
  Receipt Date: 20100920
  Transmission Date: 20110411
  Serious: Yes (Death, Hospitalization)
  Sender: FDA-Public Use
  Company Number: UK-ACCORD-003476

PATIENT
  Age: 48 Year
  Sex: Male

DRUGS (8)
  1. MITOMYCIN [Suspect]
     Indication: HEPATIC NEOPLASM MALIGNANT RECURRENT
  2. FLUOROURACIL [Suspect]
     Indication: HEPATIC NEOPLASM MALIGNANT RECURRENT
  3. EPIRUBICIN HYDROCHLORIDE [Suspect]
     Indication: HEPATIC NEOPLASM MALIGNANT RECURRENT
  4. IRINOTECAN HCL [Suspect]
     Indication: HEPATIC NEOPLASM MALIGNANT RECURRENT
  5. CISPLATIN [Suspect]
     Indication: HEPATIC NEOPLASM MALIGNANT RECURRENT
  6. INTERFERON ALFA [Suspect]
     Indication: HEPATIC NEOPLASM MALIGNANT RECURRENT
     Dosage: SUBCUTANEOUS
     Route: 058
  7. DOCETAXEL [Suspect]
     Indication: HEPATIC NEOPLASM MALIGNANT RECURRENT
  8. ISOVORIN (ISOVORIN) [Concomitant]

REACTIONS (9)
  - ANAEMIA [None]
  - DRUG INEFFECTIVE [None]
  - HEPATIC FAILURE [None]
  - METASTASES TO BONE [None]
  - METASTASES TO LIVER [None]
  - METASTASES TO LUNG [None]
  - NEOPLASM PROGRESSION [None]
  - OFF LABEL USE [None]
  - TUMOUR NECROSIS [None]
